FAERS Safety Report 20825001 (Version 2)
Quarter: 2023Q1

REPORT INFORMATION
  Report Type: Report from Study
  Country: FR (occurrence: FR)
  Receive Date: 20220513
  Receipt Date: 20230119
  Transmission Date: 20230417
  Serious: Yes (Hospitalization)
  Sender: FDA-Public Use
  Company Number: FR-SA-SAC20220511001752

PATIENT
  Sex: Male

DRUGS (4)
  1. ISATUXIMAB [Suspect]
     Active Substance: ISATUXIMAB
     Indication: Minimal residual disease
     Dosage: 10 MG/KG (DAY 1, DAY 15)
     Route: 042
     Dates: start: 20220427, end: 20220427
  2. CARFILZOMIB [Suspect]
     Active Substance: CARFILZOMIB
     Indication: Minimal residual disease
     Dosage: 56 MG/M2 (FREQUENCY DAY1,8,15)
     Route: 042
     Dates: start: 20220427, end: 20220427
  3. LENALIDOMIDE [Suspect]
     Active Substance: LENALIDOMIDE
     Indication: Minimal residual disease
     Dosage: 25 MG, QD (FREQUENCY: DAY1 TO DAY 21)
     Route: 048
     Dates: start: 20220427, end: 20220427
  4. DEXAMETHASONE [Suspect]
     Active Substance: DEXAMETHASONE
     Indication: Minimal residual disease
     Dosage: 40 MG (FREQUENCY: DAY1, DAY 8, DAY 15, DAY 22)
     Route: 048
     Dates: start: 20220427, end: 20220427

REACTIONS (1)
  - Bone pain [Recovered/Resolved]

NARRATIVE: CASE EVENT DATE: 20220509
